FAERS Safety Report 4923510-7 (Version None)
Quarter: 2006Q1

REPORT INFORMATION
  Report Type: 
  Country: None (occurrence: None)
  Receive Date: 20060227
  Receipt Date: 20060223
  Transmission Date: 20060701
  Serious: Yes (Death, Hospitalization)
  Sender: FDA-Public Use
  Company Number: 2006PK00402

PATIENT
  Age: 83 Year
  Sex: Female

DRUGS (4)
  1. PLENDIL [Suspect]
     Indication: SECONDARY HYPERTENSION
     Route: 048
  2. ARTHROTEC [Suspect]
     Indication: PAIN
     Route: 048
     Dates: end: 20051029
  3. PHENOBARBITAL TAB [Suspect]
     Indication: EPILEPSY
     Route: 048
  4. PANTOZOL [Suspect]
     Indication: GASTRIC ULCER

REACTIONS (4)
  - GENERAL PHYSICAL HEALTH DETERIORATION [None]
  - HEPATIC FAILURE [None]
  - HEPATITIS [None]
  - JAUNDICE [None]
